FAERS Safety Report 4635128-4 (Version None)
Quarter: 2005Q2

REPORT INFORMATION
  Report Type: 
  Country: None (occurrence: None)
  Receive Date: 20050414
  Receipt Date: 20050404
  Transmission Date: 20051028
  Serious: Yes (Hospitalization)
  Sender: FDA-Public Use
  Company Number: US-GLAXOSMITHKLINE-A0552514A

PATIENT
  Age: 84 Year
  Sex: Male
  Weight: 76 kg

DRUGS (8)
  1. ECOTRIN REGULAR STRENGTH TABLETS [Suspect]
     Indication: PROPHYLAXIS
     Route: 048
     Dates: start: 20041001, end: 20050201
  2. ZOCOR [Concomitant]
     Route: 048
  3. LEVOTHYROXINE [Concomitant]
     Indication: THYROID DISORDER
     Route: 048
  4. VITAMIN E [Concomitant]
     Route: 048
  5. VITAMIN C [Concomitant]
     Route: 048
  6. BETA CAROTENE [Concomitant]
     Route: 048
  7. HIGH BLOOD PRESSURE PILL [Concomitant]
     Indication: BLOOD PRESSURE
     Route: 048
  8. PLETAL [Concomitant]
     Indication: CARDIOVASCULAR DISORDER
     Route: 048

REACTIONS (2)
  - PARAESTHESIA [None]
  - TRANSIENT ISCHAEMIC ATTACK [None]
